FAERS Safety Report 4762154-7 (Version None)
Quarter: 2005Q3

REPORT INFORMATION
  Report Type: 
  Country: None (occurrence: None)
  Receive Date: 20050906
  Receipt Date: 20050906
  Transmission Date: 20060218
  Serious: Yes (Other)
  Sender: FDA-Public Use
  Company Number: None

PATIENT
  Sex: Male
  Weight: 86.1834 kg

DRUGS (1)
  1. ACCUTANE [Suspect]
     Indication: ACNE
     Dosage: TWICE DAILY    ORAL
     Route: 048
     Dates: start: 20050315, end: 20050726

REACTIONS (2)
  - BLINDNESS TRANSIENT [None]
  - URTICARIA [None]
